FAERS Safety Report 19395498 (Version 1)
Quarter: 2021Q2

REPORT INFORMATION
  Report Type: Spontaneous
  Country: AU (occurrence: AU)
  Receive Date: 20210609
  Receipt Date: 20210609
  Transmission Date: 20210717
  Serious: Yes (Life-Threatening, Hospitalization, Other)
  Sender: FDA-Public Use
  Company Number: AU-35507-2021-08876

PATIENT
  Age: 55 Year
  Sex: Female

DRUGS (3)
  1. POTASSIUM CHLORIDE. [Suspect]
     Active Substance: POTASSIUM CHLORIDE
     Indication: PRODUCT USED FOR UNKNOWN INDICATION
     Dosage: 25 GRAM, CRYSTALS
     Route: 048
  2. SERTRALINE [Suspect]
     Active Substance: SERTRALINE HYDROCHLORIDE
     Indication: PRODUCT USED FOR UNKNOWN INDICATION
     Dosage: 2 GRAM
     Route: 048
  3. OLANZAPINE. [Concomitant]
     Active Substance: OLANZAPINE
     Indication: PRODUCT USED FOR UNKNOWN INDICATION
     Dosage: 17.5 MILLIGRAM
     Route: 048

REACTIONS (12)
  - Toxicity to various agents [Unknown]
  - Leukocytosis [Unknown]
  - Overdose [Unknown]
  - Gastric haemorrhage [Unknown]
  - Laryngeal oedema [Unknown]
  - Erythema [Unknown]
  - Large intestinal haemorrhage [Unknown]
  - Oesophageal oedema [Unknown]
  - Gastrointestinal oedema [Unknown]
  - Gastrointestinal necrosis [Unknown]
  - Oropharyngeal discolouration [Unknown]
  - Gastric disorder [Unknown]
